FAERS Safety Report 5118340-X (Version None)
Quarter: 2006Q4

REPORT INFORMATION
  Report Type: 
  Country: None (occurrence: None)
  Receive Date: 20061002
  Receipt Date: 20060824
  Transmission Date: 20070319
  Serious: Yes (Hospitalization)
  Sender: FDA-Public Use
  Company Number: US-AMGEN-US191223

PATIENT
  Sex: Male

DRUGS (3)
  1. ENBREL [Suspect]
     Indication: PSORIATIC ARTHROPATHY
     Route: 058
     Dates: start: 20041227
  2. ENBREL [Suspect]
     Indication: PSORIASIS
  3. CONCERTA [Concomitant]
     Route: 065
     Dates: start: 20060601

REACTIONS (3)
  - CONDITION AGGRAVATED [None]
  - CORONARY ARTERY DISEASE [None]
  - PSORIASIS [None]
